FAERS Safety Report 6417391-2 (Version None)
Quarter: 2009Q4

REPORT INFORMATION
  Report Type: 
  Country: None (occurrence: None)
  Receive Date: 20091028
  Receipt Date: 20091016
  Transmission Date: 20100525
  Serious: Yes (Hospitalization)
  Sender: FDA-Public Use
  Company Number: JP-PFIZER INC-2009257834

PATIENT
  Age: 4 Year

DRUGS (1)
  1. GENOTROPIN [Suspect]
     Indication: BODY HEIGHT BELOW NORMAL
     Dosage: 0.6 MG, 1X/DAY
     Route: 058
     Dates: start: 20090623

REACTIONS (2)
  - OTITIS MEDIA [None]
  - PYREXIA [None]
